FAERS Safety Report 6897271-9 (Version None)
Quarter: 2010Q3

REPORT INFORMATION
  Report Type: 
  Country: None (occurrence: None)
  Receive Date: 20100802
  Receipt Date: 20070526
  Transmission Date: 20110219
  Serious: Yes (Other)
  Sender: FDA-Public Use
  Company Number: US-PFIZER-INC-2007017184

PATIENT
  Sex: Male
  Weight: 95.3 kg

DRUGS (1)
  1. LYRICA [Suspect]
     Indication: NEURALGIA
     Route: 048
     Dates: start: 20060912, end: 20060916

REACTIONS (10)
  - ABNORMAL DREAMS [None]
  - ADVERSE EVENT [None]
  - CONFUSIONAL STATE [None]
  - DIZZINESS [None]
  - DRUG INEFFECTIVE [None]
  - FORMICATION [None]
  - INSOMNIA [None]
  - PANIC REACTION [None]
  - SCIATICA [None]
  - SOMNOLENCE [None]
